FAERS Safety Report 9829835 (Version 1)
Quarter: 2014Q1

REPORT INFORMATION
  Report Type: Spontaneous
  Country: US (occurrence: US)
  Receive Date: 20140120
  Receipt Date: 20140120
  Transmission Date: 20141002
  Serious: No
  Sender: FDA-Public Use
  Company Number: US-009507513-1401USA002269

PATIENT
  Sex: Female
  Weight: 108.39 kg

DRUGS (1)
  1. IMPLANON [Suspect]
     Dosage: UNK

REACTIONS (5)
  - Device deployment issue [Unknown]
  - Device difficult to use [Unknown]
  - Device dislocation [Unknown]
  - Medical device complication [Unknown]
  - No adverse event [Unknown]
